FAERS Safety Report 7225711-4 (Version None)
Quarter: 2011Q1

REPORT INFORMATION
  Report Type: 
  Country: None (occurrence: None)
  Receive Date: 20110113
  Receipt Date: 20110108
  Transmission Date: 20110831
  Serious: Yes (Other)
  Sender: FDA-Public Use
  Company Number: CA-ABBOTT-11P-028-0695617-00

PATIENT
  Sex: Female
  Weight: 106.69 kg

DRUGS (3)
  1. SYNTHROID [Concomitant]
     Indication: THYROID DISORDER
     Dosage: 1/2 TAB EVERY OTHER DAY
     Route: 048
     Dates: start: 19990101
  2. HUMIRA [Suspect]
     Indication: CROHN'S DISEASE
     Route: 058
     Dates: start: 20100707
  3. ATACAND HCT [Concomitant]
     Indication: HYPERTENSION
     Route: 048
     Dates: start: 20010101

REACTIONS (5)
  - SYNCOPE [None]
  - IMPAIRED HEALING [None]
  - FALL [None]
  - WOUND [None]
  - WOUND DEHISCENCE [None]
